FAERS Safety Report 7647648-9 (Version None)
Quarter: 2011Q3

REPORT INFORMATION
  Report Type: 
  Country: None (occurrence: None)
  Receive Date: 20110801
  Receipt Date: 20110801
  Transmission Date: 20111222
  Serious: Yes (Death)
  Sender: FDA-Public Use
  Company Number: None

PATIENT
  Sex: Female

DRUGS (1)
  1. LOVENOX [Suspect]
     Dosage: 60 MG
     Route: 058
     Dates: start: 20110630, end: 20110728

REACTIONS (1)
  - DEATH [None]
